FAERS Safety Report 4862622-3 (Version None)
Quarter: 2005Q4

REPORT INFORMATION
  Report Type: 
  Country: None (occurrence: None)
  Receive Date: 20051221
  Receipt Date: 20051209
  Transmission Date: 20060501
  Serious: Yes (Other)
  Sender: FDA-Public Use
  Company Number: CA-BRISTOL-MYERS SQUIBB COMPANY-13219035

PATIENT
  Age: 62 Year
  Sex: Male

DRUGS (10)
  1. TEQUIN [Suspect]
     Route: 048
  2. ALTACE [Concomitant]
  3. ATROVENT [Concomitant]
  4. BEROTEC [Concomitant]
     Route: 055
  5. DELATESTRYL INJ [Concomitant]
     Route: 030
  6. DIAMICRON [Concomitant]
  7. FORMOTEROL [Concomitant]
     Route: 055
  8. LIN-PRAVASTATIN TABS [Concomitant]
  9. NOVO-METFORMIN [Concomitant]
  10. RIVASA [Concomitant]

REACTIONS (1)
  - HYPERGLYCAEMIA [None]
